FAERS Safety Report 20242131 (Version 1)
Quarter: 2021Q4

REPORT INFORMATION
  Report Type: Spontaneous
  Country: US (occurrence: US)
  Receive Date: 20211228
  Receipt Date: 20211228
  Transmission Date: 20220303
  Serious: Yes (Hospitalization, Other)
  Sender: FDA-Public Use
  Company Number: US-COOPERSURGICAL, INC.-US-2021CPS000543

PATIENT
  Age: 27 Year
  Sex: Female
  Weight: 60.771 kg

DRUGS (3)
  1. PARAGARD T 380A [Suspect]
     Active Substance: COPPER
     Indication: Contraception
     Dosage: UNK
     Route: 015
     Dates: start: 20140904, end: 20210210
  2. VALACYCLOVIR                       /01269701/ [Concomitant]
     Indication: Product used for unknown indication
     Dosage: 500 MG, BID, PRN
     Route: 048
  3. VITAMIN B-COMPLEX [Concomitant]
     Active Substance: DEXPANTHENOL\NIACINAMIDE\PYRIDOXINE HYDROCHLORIDE\RIBOFLAVIN 5^-PHOSPHATE SODIUM\THIAMINE HYDROCHLOR
     Indication: Product used for unknown indication
     Dosage: 1 UNK, QD
     Route: 048

REACTIONS (6)
  - Device breakage [Recovered/Resolved]
  - Embedded device [Recovered/Resolved]
  - Sensation of foreign body [Recovered/Resolved]
  - Pain [Unknown]
  - Abnormal uterine bleeding [Unknown]
  - Device expulsion [Recovered/Resolved]

NARRATIVE: CASE EVENT DATE: 20210204
